FAERS Safety Report 25582220 (Version 1)
Quarter: 2025Q3

REPORT INFORMATION
  Report Type: Spontaneous
  Country: US (occurrence: US)
  Receive Date: 20250719
  Receipt Date: 20250719
  Transmission Date: 20251021
  Serious: Yes (Death, Other)
  Sender: AMGEN
  Company Number: US-AMGEN-USASP2025142639

PATIENT

DRUGS (5)
  1. BLINATUMOMAB [Suspect]
     Active Substance: BLINATUMOMAB
     Indication: Minimal residual disease
     Route: 065
  2. INOTUZUMAB OZOGAMICIN [Suspect]
     Active Substance: INOTUZUMAB OZOGAMICIN
     Route: 065
  3. DEXAMETHASONE [Concomitant]
     Active Substance: DEXAMETHASONE
  4. PEGASPARGASE [Concomitant]
     Active Substance: PEGASPARGASE
  5. RITUXIMAB [Concomitant]
     Active Substance: RITUXIMAB

REACTIONS (10)
  - Death [Fatal]
  - B-cell type acute leukaemia [Unknown]
  - Multiple organ dysfunction syndrome [Unknown]
  - Pancytopenia [Unknown]
  - Hepatobiliary infection [Unknown]
  - Sepsis [Unknown]
  - Infection [Unknown]
  - Post procedural complication [Unknown]
  - Toxicity to various agents [Unknown]
  - Therapy partial responder [Unknown]
